FAERS Safety Report 10742626 (Version 1)
Quarter: 2015Q1

REPORT INFORMATION
  Report Type: Spontaneous
  Country: US (occurrence: US)
  Receive Date: 20150127
  Receipt Date: 20150127
  Transmission Date: 20150721
  Serious: Yes (Death, Hospitalization, Other)
  Sender: FDA-Public Use
  Company Number: US-BAYER-2015-011684

PATIENT
  Age: 67 Year
  Sex: Male
  Weight: 58.97 kg

DRUGS (7)
  1. PROVENTIL [Concomitant]
     Active Substance: ALBUTEROL
  2. ALKA-SELTZER PLUS COLD FORMULA [Suspect]
     Active Substance: ASPIRIN\CHLORPHENIRAMINE MALEATE\PHENYLEPHRINE BITARTRATE
     Dosage: UNK
     Dates: start: 199906
  3. FLOVENT [Concomitant]
     Active Substance: FLUTICASONE PROPIONATE
  4. ROBITUSSIN [GUAIFENESIN] [Concomitant]
  5. ATROVENT [Concomitant]
     Active Substance: IPRATROPIUM BROMIDE
  6. IMITREX [Concomitant]
     Active Substance: SUMATRIPTAN\SUMATRIPTAN SUCCINATE
  7. CORICIDIN D [CHLORPHENAM MAL,PARACET,PHENYLPROPANOLAM HCL] [Suspect]
     Active Substance: ACETAMINOPHEN\CHLORPHENIRAMINE MALEATE\PHENYLEPHRINE HYDROCHLORIDE
     Dosage: UNK
     Dates: start: 199906

REACTIONS (10)
  - Myocardial ischaemia [None]
  - Dysarthria [Fatal]
  - Hemiplegia [Fatal]
  - Staphylococcal infection [None]
  - Dysphagia [Fatal]
  - Seizure [None]
  - Cerebral infarction [Fatal]
  - Ischaemic stroke [Fatal]
  - Arthritis reactive [None]
  - Pneumonia [None]

NARRATIVE: CASE EVENT DATE: 19990621
